FAERS Safety Report 5809258-5 (Version None)
Quarter: 2008Q3

REPORT INFORMATION
  Report Type: 
  Country: None (occurrence: None)
  Receive Date: 20080714
  Receipt Date: 20080625
  Transmission Date: 20090109
  Serious: No
  Sender: FDA-Public Use
  Company Number: US-BOEHRINGER INGELHEIM GMBH, GERMANY-2008-BP-06633BP

PATIENT
  Sex: Male

DRUGS (1)
  1. COMBIVENT [Suspect]
     Indication: EMPHYSEMA
     Route: 055
     Dates: start: 20070101

REACTIONS (5)
  - ANOREXIA [None]
  - FATIGUE [None]
  - IRRITABLE BOWEL SYNDROME [None]
  - NERVOUSNESS [None]
  - VISION BLURRED [None]
